FAERS Safety Report 17619245 (Version 2)
Quarter: 2020Q2

REPORT INFORMATION
  Report Type: Spontaneous
  Country: RO (occurrence: RO)
  Receive Date: 20200403
  Receipt Date: 20200507
  Transmission Date: 20200713
  Serious: Yes (Other)
  Sender: FDA-Public Use
  Company Number: RO-009507513-1911ROM001990

PATIENT
  Age: 2 Year
  Sex: Male

DRUGS (3)
  1. FLIXOTIDE [Concomitant]
     Active Substance: FLUTICASONE PROPIONATE
     Dosage: 2 DOSAGE FORM, QD, DOSAGE TEXT: 2 PUFFS PER DAY
  2. SINGULAIR [Suspect]
     Active Substance: MONTELUKAST SODIUM
     Dosage: UNK
     Route: 048
  3. PREVNAR 13 [Suspect]
     Active Substance: PNEUMOCOCCAL 13-VALENT CONJUGATE VACCINE
     Indication: IMMUNISATION
     Dosage: UNK, DOSAGE TEXT: SINGLE DOSE, FORMULATION: SOLUTION FOR INJECTION IN PRE-FILLED SYRINGE

REACTIONS (7)
  - Drug ineffective [Unknown]
  - Otitis media [Unknown]
  - Asthma [Unknown]
  - Cough [Recovered/Resolved]
  - Pyrexia [Unknown]
  - Gastroenteritis [Unknown]
  - Rash [Unknown]
